FAERS Safety Report 6558897-5 (Version None)
Quarter: 2010Q1

REPORT INFORMATION
  Report Type: 
  Country: None (occurrence: None)
  Receive Date: 20100129
  Receipt Date: 20100125
  Transmission Date: 20100710
  Serious: Yes (Death, Life-Threatening, Hospitalization)
  Sender: FDA-Public Use
  Company Number: FR-SANOFI-AVENTIS-2010SA004301

PATIENT
  Age: 58 Year
  Sex: Female

DRUGS (5)
  1. TAXOTERE [Suspect]
     Route: 042
     Dates: start: 20070201, end: 20070401
  2. FLUOROURACIL [Suspect]
     Route: 042
     Dates: start: 20061201, end: 20070201
  3. EPIRUBICIN [Suspect]
     Route: 042
     Dates: start: 20061201, end: 20070201
  4. ENDOXAN [Suspect]
     Route: 042
     Dates: start: 20061201, end: 20070201
  5. TRASTUZUMAB [Suspect]
     Route: 042
     Dates: start: 20070401, end: 20071001

REACTIONS (1)
  - ACUTE MYELOID LEUKAEMIA [None]
